FAERS Safety Report 7323968-2 (Version None)
Quarter: 2011Q1

REPORT INFORMATION
  Report Type: 
  Country: None (occurrence: None)
  Receive Date: 20110301
  Receipt Date: 20110222
  Transmission Date: 20110831
  Serious: Yes (Hospitalization)
  Sender: FDA-Public Use
  Company Number: B0702595A

PATIENT
  Sex: Female

DRUGS (4)
  1. TAVOR [Concomitant]
     Route: 048
     Dates: start: 20080101
  2. DEPONIT [Concomitant]
     Route: 062
     Dates: start: 20080101
  3. UNKNOWN MEDICATION [Concomitant]
     Route: 048
     Dates: start: 20080101
  4. AUGMENTIN '125' [Suspect]
     Indication: CHEST PAIN
     Dosage: 125MG PER DAY
     Route: 048
     Dates: start: 20110214, end: 20110214

REACTIONS (3)
  - URTICARIA [None]
  - BACK PAIN [None]
  - RASH PRURITIC [None]
